FAERS Safety Report 23204210 (Version 2)
Quarter: 2024Q3

REPORT INFORMATION
  Report Type: Spontaneous
  Country: IT (occurrence: IT)
  Receive Date: 20231120
  Receipt Date: 20240903
  Transmission Date: 20241017
  Serious: Yes (Hospitalization, Other)
  Sender: SANDOZ
  Company Number: IT-SANDOZ-SDZ2023IT054454

PATIENT
  Age: 68 Year
  Sex: Female

DRUGS (4)
  1. MYCOPHENOLATE MOFETIL [Suspect]
     Active Substance: MYCOPHENOLATE MOFETIL
     Indication: Immunosuppression
     Dosage: UNK
     Route: 065
  2. TACROLIMUS [Suspect]
     Active Substance: TACROLIMUS
     Indication: Immunosuppression
     Dosage: UNK
     Route: 065
  3. ALBUTEROL [Concomitant]
     Active Substance: ALBUTEROL
     Indication: Product used for unknown indication
     Dosage: UNK
     Route: 065
  4. TACROLIMUS [Concomitant]
     Active Substance: TACROLIMUS
     Indication: Immunosuppressant drug therapy
     Route: 065

REACTIONS (10)
  - Bronchiectasis [Recovering/Resolving]
  - Blood immunoglobulin G decreased [Recovering/Resolving]
  - Secondary immunodeficiency [Recovering/Resolving]
  - Bronchopulmonary aspergillosis [Recovering/Resolving]
  - Hypogammaglobulinaemia [Recovering/Resolving]
  - Respiratory failure [Recovering/Resolving]
  - Respiratory tract infection [Recovering/Resolving]
  - Stenotrophomonas infection [Recovering/Resolving]
  - Aspergillus infection [Recovering/Resolving]
  - Pseudomonas infection [Recovering/Resolving]
